FAERS Safety Report 19145561 (Version 2)
Quarter: 2021Q2

REPORT INFORMATION
  Report Type: Spontaneous
  Country: JP (occurrence: JP)
  Receive Date: 20210416
  Receipt Date: 20210505
  Transmission Date: 20210717
  Serious: Yes (Other)
  Sender: FDA-Public Use
  Company Number: JP-ACCORD-222284

PATIENT
  Age: 74 Year
  Sex: Male
  Weight: 58.5 kg

DRUGS (4)
  1. EPIRUBICIN [Suspect]
     Active Substance: EPIRUBICIN
     Indication: POROCARCINOMA
     Dosage: EVERY 4 WEEKS, 3 CYCLES
     Route: 042
  2. CARBOPLATIN. [Suspect]
     Active Substance: CARBOPLATIN
     Indication: POROCARCINOMA
     Dosage: AREA UNDER THE CURVE, 5 MG/ML PER MIN (ADMINISTERED EVERY 4 WEEKS)
  3. CARBOPLATIN. [Suspect]
     Active Substance: CARBOPLATIN
     Indication: POROCARCINOMA
     Dosage: AREA UNDER THE CURVE, 5 MG/ML PER MIN (ADMINISTERED EVERY 4 WEEKS)
     Route: 042
  4. EPIRUBICIN [Suspect]
     Active Substance: EPIRUBICIN
     Indication: METASTASES TO LYMPH NODES
     Dosage: EVERY 4 WEEKS, 3 CYCLES

REACTIONS (1)
  - Cardiotoxicity [Recovering/Resolving]
